FAERS Safety Report 8063602-X (Version None)
Quarter: 2012Q1

REPORT INFORMATION
  Report Type: 
  Country: None (occurrence: None)
  Receive Date: 20120123
  Receipt Date: 20120116
  Transmission Date: 20120608
  Serious: No
  Sender: FDA-Public Use
  Company Number: US-PFIZER INC-2012013204

PATIENT

DRUGS (6)
  1. CODEINE [Suspect]
     Dosage: UNK
  2. PENICILLIN G PROCAINE [Suspect]
     Dosage: UNK
  3. RANITIDINE [Concomitant]
     Dosage: UNK
  4. MORPHINE SULFATE [Suspect]
     Dosage: UNK
  5. CRESTOR [Concomitant]
     Dosage: UNK
  6. VITAMIN D [Concomitant]
     Dosage: UNK

REACTIONS (1)
  - DRUG HYPERSENSITIVITY [None]
